FAERS Safety Report 7417399-4 (Version None)
Quarter: 2011Q2

REPORT INFORMATION
  Report Type: 
  Country: None (occurrence: None)
  Receive Date: 20110412
  Receipt Date: 20110412
  Transmission Date: 20111010
  Serious: No
  Sender: FDA-Public Use
  Company Number: None

PATIENT
  Age: 64 Year
  Sex: Male
  Weight: 104.3273 kg

DRUGS (1)
  1. METHADONE HYDROCHLORIDE [Suspect]
     Indication: BACK PAIN
     Dosage: 2.5 MG ONCE A NIGHT ORALLY AT LEAST 1.5 YEARS
     Route: 048

REACTIONS (1)
  - URINARY RETENTION [None]
